FAERS Safety Report 18206388 (Version 2)
Quarter: 2020Q3

REPORT INFORMATION
  Report Type: Spontaneous
  Country: BE (occurrence: BE)
  Receive Date: 20200827
  Receipt Date: 20200831
  Transmission Date: 20201103
  Serious: Yes (Other)
  Sender: FDA-Public Use
  Company Number: BE-ROCHE-2664888

PATIENT
  Sex: Female

DRUGS (1)
  1. TECENTRIQ [Suspect]
     Active Substance: ATEZOLIZUMAB
     Indication: PROGRESSIVE MULTIFOCAL LEUKOENCEPHALOPATHY
     Route: 065
     Dates: start: 20200709

REACTIONS (5)
  - Immune reconstitution inflammatory syndrome [Unknown]
  - Systemic inflammatory response syndrome [Unknown]
  - Intentional product use issue [Unknown]
  - JC virus CSF test positive [Unknown]
  - Off label use [Unknown]
